FAERS Safety Report 12217882 (Version 4)
Quarter: 2016Q2

REPORT INFORMATION
  Report Type: Report from Study
  Country: US (occurrence: US)
  Receive Date: 20160329
  Receipt Date: 20160428
  Transmission Date: 20160815
  Serious: Yes (Death, Hospitalization, Other)
  Sender: FDA-Public Use
  Company Number: US-GILEAD-2016-0205518

PATIENT
  Age: 67 Year
  Sex: Female
  Weight: 58.9 kg

DRUGS (4)
  1. ADEMPAS [Concomitant]
     Active Substance: RIOCIGUAT
  2. FLOLAN [Concomitant]
     Active Substance: EPOPROSTENOL SODIUM
  3. AMBRISENTAN [Suspect]
     Active Substance: AMBRISENTAN
     Indication: PULMONARY HYPERTENSION
     Dosage: 5 MG, QD
     Route: 048
     Dates: start: 20140807
  4. OXYGEN. [Concomitant]
     Active Substance: OXYGEN

REACTIONS (5)
  - Clostridium difficile infection [Unknown]
  - Retinal detachment [Unknown]
  - Death [Fatal]
  - Diarrhoea [Unknown]
  - Oedema [Unknown]

NARRATIVE: CASE EVENT DATE: 20160413
